FAERS Safety Report 4491177-0 (Version None)
Quarter: 2004Q3

REPORT INFORMATION
  Report Type: 
  Country: None (occurrence: None)
  Receive Date: 20040927
  Receipt Date: 20040803
  Transmission Date: 20050211
  Serious: No
  Sender: FDA-Public Use
  Company Number: USA040874438

PATIENT
  Age: 6 Year
  Sex: Male
  Weight: 29 kg

DRUGS (1)
  1. STRATTERA [Suspect]
     Indication: PSYCHOMOTOR HYPERACTIVITY
     Dosage: 25 MG IN THE MORNING

REACTIONS (5)
  - ANOREXIA [None]
  - DRUG INEFFECTIVE [None]
  - DYSKINESIA [None]
  - INSOMNIA [None]
  - WEIGHT DECREASED [None]
